FAERS Safety Report 5012756-8 (Version None)
Quarter: 2006Q2

REPORT INFORMATION
  Report Type: 
  Country: None (occurrence: None)
  Receive Date: 20060530
  Receipt Date: 20060201
  Transmission Date: 20061013
  Serious: No
  Sender: FDA-Public Use
  Company Number: US-BRISTOL-MYERS SQUIBB COMPANY-13267844

PATIENT
  Age: 75 Year
  Sex: Male

DRUGS (2)
  1. ERBITUX [Suspect]
     Indication: LARYNGEAL CANCER RECURRENT
     Route: 042
     Dates: start: 20051201, end: 20051201
  2. PLATINOL [Concomitant]

REACTIONS (1)
  - SKIN CANCER [None]
